FAERS Safety Report 26161490 (Version 1)
Quarter: 2025Q4

REPORT INFORMATION
  Report Type: Spontaneous
  Country: US (occurrence: US)
  Receive Date: 20251216
  Receipt Date: 20251216
  Transmission Date: 20260117
  Serious: No
  Sender: ALVOGEN
  Company Number: US-ALVOGEN-2025096282

PATIENT
  Sex: Male

DRUGS (4)
  1. FENTANYL [Suspect]
     Active Substance: FENTANYL
     Indication: Back pain
     Dosage: EVERY 3 DAYS, SINCE 4-5 MONTHS; 12 MCG
     Route: 062
     Dates: start: 2024
  2. FENTANYL [Suspect]
     Active Substance: FENTANYL
     Indication: Back pain
     Dosage: EVERY 3 DAYS, SINCE 4-5 MONTHS; 25MCG/HR; 5 PACK
     Route: 062
     Dates: start: 2024
  3. FENTANYL [Suspect]
     Active Substance: FENTANYL
     Indication: Back pain
     Dosage: EXPIRATION DATE: AUG-2027, EVERY 3 DAYS, INCREASED TO 25MCG/HR (CURRENT BOX)
     Route: 062
  4. HYDROMORPHONE [Concomitant]
     Active Substance: HYDROMORPHONE
     Indication: Pain
     Dosage: 4 MG TWICE DAILY

REACTIONS (1)
  - Drug effect less than expected [Unknown]

NARRATIVE: CASE EVENT DATE: 20240101
